FAERS Safety Report 12252005 (Version 1)
Quarter: 2016Q2

REPORT INFORMATION
  Report Type: Report from Study
  Country: IT (occurrence: IT)
  Receive Date: 20160411
  Receipt Date: 20160411
  Transmission Date: 20160815
  Serious: Yes (Hospitalization)
  Sender: FDA-Public Use
  Company Number: IT-ACCORD-039496

PATIENT
  Age: 49 Year
  Sex: Female

DRUGS (2)
  1. QUETIAPINE ACCORD [Suspect]
     Active Substance: QUETIAPINE
     Indication: PRODUCT USED FOR UNKNOWN INDICATION
     Dosage: STRENGTH. 200 MG?DOSE: 1600 MG TOTAL (08 DOSAGE FORM)
     Route: 048
     Dates: start: 20160306, end: 20160306
  2. PASADEN [Suspect]
     Active Substance: ETIZOLAM
     Indication: PRODUCT USED FOR UNKNOWN INDICATION
     Dosage: STRENGTH. 0.5 MG??DOSE: 1 MG TOTAL (2 TABLETS)
     Route: 048
     Dates: start: 20160306, end: 20160306

REACTIONS (2)
  - Sopor [Recovering/Resolving]
  - Drug abuse [Recovering/Resolving]

NARRATIVE: CASE EVENT DATE: 20160306
